FAERS Safety Report 12679841 (Version 1)
Quarter: 2016Q3

REPORT INFORMATION
  Report Type: Spontaneous
  Country: US (occurrence: None)
  Receive Date: 20160823
  Receipt Date: 20160823
  Transmission Date: 20161109
  Serious: Yes (Hospitalization, Disabling, Other)
  Sender: FDA-Public Use
  Company Number: None

PATIENT
  Age: 24 Year
  Sex: Male
  Weight: 70.31 kg

DRUGS (4)
  1. INVEGA [Suspect]
     Active Substance: PALIPERIDONE
  2. VAPORIZER PIPE-FLAVORED NICOTINE [Concomitant]
     Active Substance: NICOTINE
  3. INVEGA SUSTENNA [Suspect]
     Active Substance: PALIPERIDONE PALMITATE
     Indication: DRUG DEPENDENCE
     Dates: start: 2015
  4. INVEGA SUSTENNA [Suspect]
     Active Substance: PALIPERIDONE PALMITATE
     Indication: SCHIZOPHRENIA
     Dates: start: 2015

REACTIONS (3)
  - Dysphagia [None]
  - Underweight [None]
  - Tremor [None]

NARRATIVE: CASE EVENT DATE: 20160427
